FAERS Safety Report 18981976 (Version 3)
Quarter: 2021Q2

REPORT INFORMATION
  Report Type: Spontaneous
  Country: US (occurrence: US)
  Receive Date: 20210308
  Receipt Date: 20210518
  Transmission Date: 20210717
  Serious: No
  Sender: FDA-Public Use
  Company Number: US-PFIZER INC-2021078577

PATIENT
  Age: 55 Year
  Sex: Female

DRUGS (1)
  1. XELJANZ [Suspect]
     Active Substance: TOFACITINIB CITRATE
     Indication: RHEUMATOID ARTHRITIS
     Dosage: 5 MG, 2X/DAY

REACTIONS (10)
  - Hyperaesthesia [Unknown]
  - Weight decreased [Unknown]
  - Abdominal pain [Unknown]
  - Arthralgia [Not Recovered/Not Resolved]
  - Therapeutic product effect incomplete [Not Recovered/Not Resolved]
  - Back pain [Unknown]
  - Skin discolouration [Unknown]
  - Fatigue [Unknown]
  - Alopecia [Unknown]
  - Urticaria [Unknown]
